FAERS Safety Report 6277536-4 (Version None)
Quarter: 2009Q3

REPORT INFORMATION
  Report Type: 
  Country: None (occurrence: None)
  Receive Date: 20090722
  Receipt Date: 20090709
  Transmission Date: 20100115
  Serious: Yes (Other)
  Sender: FDA-Public Use
  Company Number: JP-PFIZER INC-2009238802

PATIENT
  Age: 17 Year

DRUGS (2)
  1. GABAPEN [Suspect]
     Indication: HYPERSOMNIA-BULIMIA SYNDROME
  2. CARBAMAZEPINE [Concomitant]
     Indication: HYPERSOMNIA-BULIMIA SYNDROME

REACTIONS (1)
  - HYPERSOMNIA [None]
